FAERS Safety Report 10584585 (Version 1)
Quarter: 2014Q4

REPORT INFORMATION
  Report Type: Spontaneous
  Country: DE (occurrence: DE)
  Receive Date: 20141114
  Receipt Date: 20141114
  Transmission Date: 20150529
  Serious: Yes (Congenital Anomaly, Other)
  Sender: FDA-Public Use
  Company Number: GXKR2014DE004178

PATIENT

DRUGS (2)
  1. LAMOTRIGINE. [Suspect]
     Active Substance: LAMOTRIGINE
     Indication: EPILEPSY
     Dosage: 400 MG/D (2X200MG/D)
     Route: 064
     Dates: start: 20121210, end: 20130909
  2. FOLSAEURE [Concomitant]
     Active Substance: FOLIC ACID
     Indication: PROPHYLAXIS OF NEURAL TUBE DEFECT
     Dosage: 5 [MG/D]
     Route: 064
     Dates: start: 20121210, end: 20130718

REACTIONS (6)
  - Small for dates baby [Unknown]
  - Syringomyelia [Not Recovered/Not Resolved]
  - Hypoglycaemia neonatal [Recovered/Resolved]
  - Meningomyelocele [Not Recovered/Not Resolved]
  - Foramen magnum stenosis [Not Recovered/Not Resolved]
  - Tethered cord syndrome [Not Recovered/Not Resolved]

NARRATIVE: CASE EVENT DATE: 20130909
